FAERS Safety Report 7419797-1 (Version None)
Quarter: 2011Q2

REPORT INFORMATION
  Report Type: 
  Country: None (occurrence: None)
  Receive Date: 20110418
  Receipt Date: 20110405
  Transmission Date: 20111010
  Serious: Yes (Hospitalization, Other)
  Sender: FDA-Public Use
  Company Number: FR-EISAI INC-E3810-04596-SPO-FR

PATIENT
  Age: 48 Year
  Sex: Male

DRUGS (3)
  1. ADVIL LIQUI-GELS [Suspect]
     Indication: ABDOMINAL PAIN UPPER
     Dosage: UNKNOWN
     Route: 048
     Dates: start: 20100401
  2. PARIET (RABEPRAZOLE) [Suspect]
     Indication: ABDOMINAL PAIN UPPER
     Dosage: UNKNOWN
     Route: 048
     Dates: start: 20100401
  3. BI-PROFENID [Suspect]
     Indication: PAIN
     Dosage: UNKNOWN
     Route: 048
     Dates: start: 20101001

REACTIONS (4)
  - DYSPNOEA [None]
  - ANGIOEDEMA [None]
  - URTICARIA [None]
  - FACE OEDEMA [None]
